FAERS Safety Report 4659909-6 (Version None)
Quarter: 2005Q2

REPORT INFORMATION
  Report Type: 
  Country: None (occurrence: None)
  Receive Date: 20050419
  Receipt Date: 20040617
  Transmission Date: 20051028
  Serious: Yes (Other)
  Sender: FDA-Public Use
  Company Number: 04-243-0092

PATIENT
  Age: 50 Year
  Sex: Female
  Weight: 76.6579 kg

DRUGS (4)
  1. DOXORUBICIN, UNKNOWN SOLUTION, BEN VENUE LABS [Suspect]
     Indication: BREAST CANCER
     Dosage: 114MG3WKS VIA IV X4CYCLE
     Route: 042
     Dates: start: 20040520
  2. CYCLOPHOSPHAMIDE [Concomitant]
  3. DEXAMETHASONE [Concomitant]
  4. ANZEMET [Concomitant]

REACTIONS (2)
  - CONDITION AGGRAVATED [None]
  - URTICARIA [None]
